FAERS Safety Report 10208702 (Version 2)
Quarter: 2014Q2

REPORT INFORMATION
  Report Type: Report from Study
  Country: CN (occurrence: CN)
  Receive Date: 20140530
  Receipt Date: 20140617
  Transmission Date: 20141212
  Serious: Yes (Hospitalization, Other)
  Sender: FDA-Public Use
  Company Number: CN-ASTELLAS-2014US006070

PATIENT
  Age: 57 Year
  Sex: Female

DRUGS (1)
  1. ERLOTINIB [Suspect]
     Indication: NON-SMALL CELL LUNG CANCER
     Route: 048
     Dates: start: 20111109

REACTIONS (3)
  - Epilepsy [Unknown]
  - Coma [Recovered/Resolved]
  - Drug ineffective [Unknown]
